FAERS Safety Report 17471984 (Version 1)
Quarter: 2020Q1

REPORT INFORMATION
  Report Type: Spontaneous
  Country: US (occurrence: US)
  Receive Date: 20200228
  Receipt Date: 20200228
  Transmission Date: 20200409
  Serious: No
  Sender: FDA-Public Use
  Company Number: US-JNJFOC-20200211348

PATIENT
  Sex: Female
  Weight: 72.64 kg

DRUGS (2)
  1. ROGAINE [Suspect]
     Active Substance: MINOXIDIL
     Indication: ALOPECIA
     Dosage: 1/2 CAPFUL 2 X PER DAY
     Route: 061
  2. AMBIEN [Concomitant]
     Active Substance: ZOLPIDEM TARTRATE
     Indication: INSOMNIA
     Route: 065

REACTIONS (4)
  - Overdose [Unknown]
  - Sensory disturbance [Recovered/Resolved]
  - Inappropriate schedule of product administration [Unknown]
  - Application site pruritus [Recovered/Resolved]
